FAERS Safety Report 19481360 (Version 4)
Quarter: 2021Q4

REPORT INFORMATION
  Report Type: Report from Study
  Country: IL (occurrence: IL)
  Receive Date: 20210701
  Receipt Date: 20211126
  Transmission Date: 20220303
  Serious: Yes (Hospitalization, Disabling)
  Sender: FDA-Public Use
  Company Number: NVSC2021IL133515

PATIENT
  Age: 66 Year
  Sex: Female
  Weight: 59 kg

DRUGS (10)
  1. RIBOCICLIB [Suspect]
     Active Substance: RIBOCICLIB
     Indication: Malignant melanoma
     Dosage: 400 MG, QD
     Route: 048
     Dates: start: 20210211
  2. NAPORAFENIB [Suspect]
     Active Substance: NAPORAFENIB
     Indication: Malignant melanoma
     Dosage: 400 MG, BID
     Route: 048
     Dates: start: 20210211
  3. SYSTANE LUBRICANT [Concomitant]
     Active Substance: POLYETHYLENE GLYCOL 400\PROPYLENE GLYCOL
     Indication: Foreign body in eye
     Dosage: 0.4% + 0.3%
     Route: 065
     Dates: start: 20210411
  4. FAMOTIDINE [Concomitant]
     Active Substance: FAMOTIDINE
     Indication: General physical condition
     Dosage: UNK
     Route: 065
     Dates: start: 2017
  5. OXYMETAZOLINE HYDROCHLORIDE [Concomitant]
     Active Substance: OXYMETAZOLINE HYDROCHLORIDE
     Indication: Epistaxis
     Dosage: 0.05 %
     Route: 065
     Dates: start: 20210411
  6. FEXOFENADINE [Concomitant]
     Active Substance: FEXOFENADINE HYDROCHLORIDE
     Indication: Pruritus
     Dosage: 180 MG
     Route: 065
     Dates: start: 20210426
  7. EUTHYROX [Concomitant]
     Active Substance: LEVOTHYROXINE SODIUM
     Indication: Hypothyroidism
     Dosage: UNK
     Route: 065
     Dates: start: 20160101
  8. PREDNISONE [Concomitant]
     Active Substance: PREDNISONE
     Indication: General physical condition
     Dosage: UNK
     Route: 065
     Dates: start: 2016
  9. DUAC [Concomitant]
     Active Substance: BENZOYL PEROXIDE\CLINDAMYCIN PHOSPHATE
     Indication: Rash
     Dosage: UNK
     Route: 065
     Dates: start: 20210303
  10. DUAC [Concomitant]
     Active Substance: BENZOYL PEROXIDE\CLINDAMYCIN PHOSPHATE
     Indication: Rash
     Dosage: UNK
     Route: 065
     Dates: start: 20210416

REACTIONS (1)
  - Neuralgia [Not Recovered/Not Resolved]

NARRATIVE: CASE EVENT DATE: 20210614
